FAERS Safety Report 17054453 (Version 5)
Quarter: 2021Q1

REPORT INFORMATION
  Report Type: Spontaneous
  Country: JP (occurrence: JP)
  Receive Date: 20191120
  Receipt Date: 20210219
  Transmission Date: 20210419
  Serious: Yes (Death, Other)
  Sender: FDA-Public Use
  Company Number: JP-ASTRAZENECA-2019SF64367

PATIENT
  Age: 22075 Day
  Sex: Female
  Weight: 65 kg

DRUGS (19)
  1. PREDONINE [Concomitant]
     Active Substance: PREDNISOLONE
     Indication: ASTHMA
     Dosage: DOSE UNKNOWN
     Route: 065
  2. OLMESARTAN [Concomitant]
     Active Substance: OLMESARTAN
     Dosage: DOSE UNKNOWN
     Route: 065
  3. BAKTAR [Concomitant]
     Active Substance: SULFAMETHOXAZOLE\TRIMETHOPRIM
     Dosage: DOSE UNKNOWN
     Route: 048
  4. ETIZOLAM [Concomitant]
     Active Substance: ETIZOLAM
     Dosage: DOSE UNKNOWN
     Route: 065
  5. SEEBRI [Concomitant]
     Active Substance: GLYCOPYRROLATE
     Dosage: DOSE UNKNOWN
     Route: 065
  6. MONTELUKAST [Concomitant]
     Active Substance: MONTELUKAST SODIUM
     Dosage: DOSE UNKNOWN
     Route: 065
  7. HOKUNALIN:TAPE [Concomitant]
     Active Substance: TULOBUTEROL
     Dosage: DOSE UNKNOWN
     Route: 062
  8. CROMOGLICATE NA [Concomitant]
     Dosage: DOSE UNKNOWN
     Route: 055
  9. ACETAMINOPHEN. [Suspect]
     Active Substance: ACETAMINOPHEN
     Dosage: DOSE UNKNOWN
     Route: 065
  10. NEXIUM [Concomitant]
     Active Substance: ESOMEPRAZOLE MAGNESIUM
     Dosage: DOSE UNKNOWN
     Route: 048
  11. FLUTIFORM [Concomitant]
     Active Substance: FLUTICASONE PROPIONATE\FORMOTEROL FUMARATE
     Route: 055
  12. MEPTIN [Concomitant]
     Active Substance: PROCATEROL HYDROCHLORIDE
     Indication: ASTHMA
     Route: 055
  13. FASENRA [Suspect]
     Active Substance: BENRALIZUMAB
     Indication: ASTHMA
     Dosage: 30.0MG UNKNOWN
     Route: 058
     Dates: start: 20180530, end: 201910
  14. L?CARBOCISTEINE [Concomitant]
     Active Substance: CARBOCYSTEINE
     Dosage: DOSE UNKNOWN
     Route: 065
  15. FEXOFENADINE HYDROCHLORIDE. [Concomitant]
     Active Substance: FEXOFENADINE HYDROCHLORIDE
     Dosage: DOSE UNKNOWN
     Route: 065
  16. ALFACALCIDOL [Concomitant]
     Active Substance: ALFACALCIDOL
     Dosage: DOSE UNKNOWN
     Route: 065
  17. AMLODIPINE [Concomitant]
     Active Substance: AMLODIPINE BESYLATE
     Dosage: DOSE UNKNOWN
     Route: 065
  18. RIVOTRIL [Concomitant]
     Active Substance: CLONAZEPAM
     Dosage: DOSE UNKNOWN
     Route: 065
  19. DEXAMETHASONE. [Concomitant]
     Active Substance: DEXAMETHASONE
     Indication: ASTHMA
     Route: 065
     Dates: start: 20171004

REACTIONS (10)
  - Hyperbilirubinaemia [Recovering/Resolving]
  - Haemorrhagic diathesis [Unknown]
  - Platelet count decreased [Recovering/Resolving]
  - Pneumonia staphylococcal [Fatal]
  - Pneumothorax [Unknown]
  - Gastrointestinal haemorrhage [Unknown]
  - Septic shock [Fatal]
  - Disseminated intravascular coagulation [Unknown]
  - Drug eruption [Unknown]
  - Congestive hepatopathy [Unknown]

NARRATIVE: CASE EVENT DATE: 20191105
